FAERS Safety Report 22606377 (Version 1)
Quarter: 2023Q2

REPORT INFORMATION
  Report Type: Spontaneous
  Country: US (occurrence: US)
  Receive Date: 20230615
  Receipt Date: 20230615
  Transmission Date: 20230722
  Serious: Yes (Disabling, Other)
  Sender: FDA-Public Use
  Company Number: US-ABBVIE-5291631

PATIENT
  Sex: Female

DRUGS (1)
  1. LUPRON [Suspect]
     Active Substance: LEUPROLIDE ACETATE
     Indication: Product used for unknown indication
     Route: 065

REACTIONS (12)
  - Incision site impaired healing [Not Recovered/Not Resolved]
  - Unevaluable event [Unknown]
  - Gait inability [Unknown]
  - Pain in extremity [Unknown]
  - Unevaluable event [Unknown]
  - Genital injury [Not Recovered/Not Resolved]
  - Tissue injury [Unknown]
  - Scar [Not Recovered/Not Resolved]
  - Osteoarthritis [Unknown]
  - Limb deformity [Unknown]
  - Abnormal faeces [Unknown]
  - Nerve injury [Unknown]
